FAERS Safety Report 9188242 (Version 1)
Quarter: 2013Q1

REPORT INFORMATION
  Report Type: Spontaneous
  Country: US (occurrence: US)
  Receive Date: 20130325
  Receipt Date: 20130325
  Transmission Date: 20140127
  Serious: No
  Sender: FDA-Public Use
  Company Number: US-PFIZER INC-2013096253

PATIENT
  Age: 71 Year
  Sex: Female
  Weight: 59.86 kg

DRUGS (5)
  1. CELEBREX [Suspect]
     Indication: INTERVERTEBRAL DISC PROTRUSION
     Dosage: 200 MG, 1X/DAY
     Dates: start: 2005
  2. CELEBREX [Suspect]
     Indication: OSTEOPOROSIS
  3. LYRICA [Suspect]
     Indication: FIBROMYALGIA
     Dosage: 75 MG, 2X/DAY
     Dates: start: 2008
  4. PROTONIX [Suspect]
     Indication: GASTROOESOPHAGEAL REFLUX DISEASE
     Dosage: 40 MG, 2X/DAY
  5. PROTONIX [Suspect]
     Indication: IRRITABLE BOWEL SYNDROME

REACTIONS (1)
  - Influenza [Recovered/Resolved]
